FAERS Safety Report 6764930-8 (Version None)
Quarter: 2010Q2

REPORT INFORMATION
  Report Type: 
  Country: None (occurrence: None)
  Receive Date: 20100610
  Receipt Date: 20100531
  Transmission Date: 20101027
  Serious: Yes (Disabling, Other)
  Sender: FDA-Public Use
  Company Number: GB-ABBOTT-09P-167-0598621-00

PATIENT
  Age: 45 Year
  Sex: Male
  Weight: 78 kg

DRUGS (20)
  1. NORVIR [Suspect]
     Indication: HIV INFECTION
  2. PREZISTA [Suspect]
     Indication: HIV INFECTION
     Route: 048
     Dates: start: 20080729
  3. RALTEGRAVIR [Suspect]
     Indication: HIV INFECTION
  4. INTELENCE [Concomitant]
     Indication: HIV INFECTION
     Route: 048
  5. PREGABALIN [Concomitant]
     Indication: DRUG USE FOR UNKNOWN INDICATION
     Route: 048
  6. MORPHINE SULFATE [Concomitant]
     Indication: DRUG USE FOR UNKNOWN INDICATION
     Route: 048
  7. ORAMORPH SR [Concomitant]
     Indication: DRUG USE FOR UNKNOWN INDICATION
     Route: 048
  8. DAPSONE [Concomitant]
     Indication: DRUG USE FOR UNKNOWN INDICATION
     Route: 048
  9. PYRIMETHAMINE TAB [Concomitant]
     Indication: DRUG USE FOR UNKNOWN INDICATION
     Route: 048
  10. VALGANCICLOVIR [Concomitant]
     Indication: DRUG USE FOR UNKNOWN INDICATION
  11. DOMPERIDONE [Concomitant]
     Indication: DRUG USE FOR UNKNOWN INDICATION
     Route: 048
  12. AZITHROMYCIN [Concomitant]
     Indication: DRUG USE FOR UNKNOWN INDICATION
  13. CALCIUM CARBONATE [Concomitant]
     Indication: DRUG USE FOR UNKNOWN INDICATION
  14. DOCUSATE SODIUM [Concomitant]
     Indication: DRUG USE FOR UNKNOWN INDICATION
     Route: 048
  15. IBUPROFEN [Concomitant]
     Indication: DRUG USE FOR UNKNOWN INDICATION
     Route: 048
  16. TESTIM [Concomitant]
     Indication: DRUG USE FOR UNKNOWN INDICATION
  17. CACIT VITAMINE D3 [Concomitant]
     Indication: DRUG USE FOR UNKNOWN INDICATION
     Route: 048
  18. FUROSEMIDE [Concomitant]
     Indication: DRUG USE FOR UNKNOWN INDICATION
     Route: 048
  19. ACYCLOVIR [Concomitant]
     Indication: DRUG USE FOR UNKNOWN INDICATION
     Route: 048
  20. LEUCOVORIN CALCIUM [Concomitant]
     Indication: DRUG USE FOR UNKNOWN INDICATION
     Route: 048

REACTIONS (3)
  - BLOOD CHOLESTEROL INCREASED [None]
  - OEDEMA [None]
  - WEIGHT INCREASED [None]
